FAERS Safety Report 24304380 (Version 1)
Quarter: 2024Q3

REPORT INFORMATION
  Report Type: Report from Study
  Country: HR (occurrence: HR)
  Receive Date: 20240910
  Receipt Date: 20240910
  Transmission Date: 20241016
  Serious: Yes (Life-Threatening, Other)
  Sender: PFIZER
  Company Number: HR-PFIZER INC-202400252083

PATIENT
  Age: 6 Year
  Sex: Male

DRUGS (1)
  1. VINCRISTINE SULFATE [Suspect]
     Active Substance: VINCRISTINE SULFATE
     Indication: Nephroblastoma
     Dosage: UNK, CYCLIC

REACTIONS (2)
  - Venoocclusive disease [Recovered/Resolved]
  - Polyneuropathy [Unknown]
